FAERS Safety Report 13792115 (Version 1)
Quarter: 2017Q3

REPORT INFORMATION
  Report Type: Spontaneous
  Country: US (occurrence: US)
  Receive Date: 20170725
  Receipt Date: 20170725
  Transmission Date: 20171127
  Serious: No
  Sender: FDA-Public Use
  Company Number: US-ROCHE-1937435

PATIENT
  Age: 48 Year
  Sex: Female
  Weight: 74.91 kg

DRUGS (1)
  1. OCREVUS [Suspect]
     Active Substance: OCRELIZUMAB
     Indication: MULTIPLE SCLEROSIS
     Dosage: 1 TREATMENT EVERY TWO WEEKS AND THEN EVERY 6 MONTH ;ONGOING: YES
     Route: 042
     Dates: start: 20170508

REACTIONS (4)
  - Abdominal discomfort [Recovered/Resolved with Sequelae]
  - Vomiting [Recovered/Resolved]
  - Malaise [Recovered/Resolved with Sequelae]
  - Nausea [Recovered/Resolved]

NARRATIVE: CASE EVENT DATE: 20170509
